FAERS Safety Report 4706659-3 (Version None)
Quarter: 2005Q3

REPORT INFORMATION
  Report Type: 
  Country: None (occurrence: None)
  Receive Date: 20050705
  Receipt Date: 20050602
  Transmission Date: 20060218
  Serious: Yes (Hospitalization)
  Sender: FDA-Public Use
  Company Number: FR-ROCHE-406596

PATIENT
  Age: 74 Year
  Sex: Female

DRUGS (6)
  1. ROCEPHIN [Suspect]
     Indication: PNEUMONIA
     Dosage: FORMULATION REPORTED: INJECTABLE SOLUTION.
     Route: 030
     Dates: start: 20050412, end: 20050413
  2. TIORFAN [Suspect]
     Indication: DRUG USE FOR UNKNOWN INDICATION
     Route: 048
     Dates: start: 20050411, end: 20050412
  3. COLCHICINE HOUDE [Suspect]
     Indication: GOUT
     Route: 048
     Dates: start: 20050411, end: 20050414
  4. PLAVIX [Concomitant]
  5. TAHOR [Concomitant]
  6. LEVOTHYROX [Concomitant]
     Indication: HYPOTHYROIDISM

REACTIONS (3)
  - EOSINOPHILIA [None]
  - HEPATITIS [None]
  - URTICARIA [None]
